FAERS Safety Report 5643266-2 (Version None)
Quarter: 2008Q1

REPORT INFORMATION
  Report Type: 
  Country: None (occurrence: None)
  Receive Date: 20080228
  Receipt Date: 20080218
  Transmission Date: 20080703
  Serious: Yes (Other)
  Sender: FDA-Public Use
  Company Number: ES-ROCHE-548887

PATIENT
  Sex: Female

DRUGS (1)
  1. BONIVA [Suspect]
     Indication: DRUG USE FOR UNKNOWN INDICATION
     Dosage: FORMULATION: INJECTABLE SOLUTION IN PREFILLED SYRINGE.
     Route: 042

REACTIONS (2)
  - BRONCHOSPASM [None]
  - INFLUENZA [None]
